FAERS Safety Report 12979125 (Version 1)
Quarter: 2016Q4

REPORT INFORMATION
  Report Type: Spontaneous
  Country: BR (occurrence: BR)
  Receive Date: 20161128
  Receipt Date: 20161128
  Transmission Date: 20170207
  Serious: Yes (Hospitalization, Other)
  Sender: FDA-Public Use
  Company Number: BR-GLAXOSMITHKLINE-BR2016GSK172087

PATIENT
  Sex: Female
  Weight: 32 kg

DRUGS (2)
  1. MONTELAIR (MONTELUKAST) [Concomitant]
     Active Substance: MONTELUKAST SODIUM
     Dosage: UNK
  2. SERETIDE [Suspect]
     Active Substance: FLUTICASONE PROPIONATE\SALMETEROL XINAFOATE
     Indication: ASTHMA
     Dosage: 2 PUFF(S), BID
     Route: 055

REACTIONS (5)
  - Off label use [Not Recovered/Not Resolved]
  - Asthmatic crisis [Unknown]
  - Treatment noncompliance [Recovered/Resolved]
  - Overdose [Not Recovered/Not Resolved]
  - Inappropriate schedule of drug administration [Recovered/Resolved]
